FAERS Safety Report 23317921 (Version 2)
Quarter: 2024Q1

REPORT INFORMATION
  Report Type: Report from Study
  Country: US (occurrence: US)
  Receive Date: 20231219
  Receipt Date: 20240102
  Transmission Date: 20240409
  Serious: Yes (Hospitalization)
  Sender: FDA-Public Use
  Company Number: US-ABBVIE-5546512

PATIENT
  Sex: Male

DRUGS (1)
  1. VENCLEXTA [Suspect]
     Active Substance: VENETOCLAX
     Indication: Acute myeloid leukaemia
     Route: 048
     Dates: start: 202310

REACTIONS (3)
  - Platelet count decreased [Unknown]
  - Fatigue [Recovering/Resolving]
  - Onychoclasis [Unknown]

NARRATIVE: CASE EVENT DATE: 20230101
